FAERS Safety Report 25386229 (Version 1)
Quarter: 2025Q2

REPORT INFORMATION
  Report Type: Spontaneous
  Country: US (occurrence: None)
  Receive Date: 20250530
  Receipt Date: 20250530
  Transmission Date: 20250716
  Serious: Yes (Life-Threatening, Hospitalization, Disabling, Other)
  Sender: FDA-CTU
  Company Number: None

PATIENT
  Age: 22 Year
  Sex: Male

DRUGS (1)
  1. PAROXETINE [Suspect]
     Active Substance: PAROXETINE
     Indication: Major depression
     Route: 048
     Dates: start: 20020501, end: 20050501

REACTIONS (9)
  - Weight increased [None]
  - Somnolence [None]
  - Lethargy [None]
  - Behaviour disorder [None]
  - Victim of abuse [None]
  - Suicidal ideation [None]
  - Drug withdrawal syndrome [None]
  - Suicide attempt [None]
  - Insomnia [None]

NARRATIVE: CASE EVENT DATE: 20051001
